FAERS Safety Report 7341630-7 (Version None)
Quarter: 2011Q1

REPORT INFORMATION
  Report Type: 
  Country: None (occurrence: None)
  Receive Date: 20110228
  Receipt Date: 20110214
  Transmission Date: 20110831
  Serious: Yes (Hospitalization)
  Sender: FDA-Public Use
  Company Number: 2010AL000094

PATIENT
  Sex: Male
  Weight: 68 kg

DRUGS (1)
  1. PRALATREXATE (PRALATREXATE) [Suspect]
     Indication: BLADDER CANCER
     Dosage: 329 MG) QOW; IV
     Route: 042
     Dates: start: 20100506

REACTIONS (7)
  - SCRATCH [None]
  - BLADDER CANCER [None]
  - RASH PRURITIC [None]
  - CELLULITIS [None]
  - ASCITES [None]
  - NEOPLASM MALIGNANT [None]
  - STOMATITIS [None]
